FAERS Safety Report 14931808 (Version 2)
Quarter: 2018Q2

REPORT INFORMATION
  Report Type: Spontaneous
  Country: NL (occurrence: NL)
  Receive Date: 20180524
  Receipt Date: 20180530
  Transmission Date: 20180711
  Serious: Yes (Other)
  Sender: FDA-Public Use
  Company Number: NL-BEH-2018090803

PATIENT
  Age: 2 Year
  Sex: Male

DRUGS (2)
  1. FACTOR VIII RECOMBINANT (INN) [Suspect]
     Active Substance: ANTIHEMOPHILIC FACTOR, HUMAN RECOMBINANT
     Indication: FACTOR VIII DEFICIENCY
     Dosage: UNK, QW
     Route: 065
  2. FACTOR VIII RECOMBINANT (INN) [Suspect]
     Active Substance: ANTIHEMOPHILIC FACTOR, HUMAN RECOMBINANT
     Indication: PROPHYLAXIS
     Dosage: UNK, TIW
     Route: 065

REACTIONS (5)
  - Factor VIII inhibition [Recovered/Resolved]
  - Fatigue [Unknown]
  - Pyrexia [Unknown]
  - Contusion [Recovered/Resolved]
  - Listless [Unknown]
